FAERS Safety Report 6167025-X (Version None)
Quarter: 2009Q2

REPORT INFORMATION
  Report Type: 
  Country: None (occurrence: None)
  Receive Date: 20090424
  Receipt Date: 20090414
  Transmission Date: 20091009
  Serious: Yes (Other)
  Sender: FDA-Public Use
  Company Number: FR-PFIZER INC-2009198990

PATIENT

DRUGS (1)
  1. LYRICA [Suspect]
     Indication: PAIN
     Dosage: UNK MG, UNK
     Dates: start: 20081001

REACTIONS (4)
  - CATARACT [None]
  - GLAUCOMA [None]
  - MACULAR DEGENERATION [None]
  - VISION BLURRED [None]
